FAERS Safety Report 4717932-7 (Version None)
Quarter: 2005Q3

REPORT INFORMATION
  Report Type: 
  Country: None (occurrence: None)
  Receive Date: 20050715
  Receipt Date: 20050622
  Transmission Date: 20060218
  Serious: Yes (Life-Threatening)
  Sender: FDA-Public Use
  Company Number: 214969

PATIENT
  Sex: Male

DRUGS (22)
  1. MABTHERA (RITUXIMAB) CONC FOR SOLUTION FOR INFUSION [Suspect]
     Indication: LYMPHOMA
     Dosage: 625 MG, INTRAVENOUS
     Route: 042
     Dates: start: 20050322, end: 20050414
  2. MABTHERA (RITUXIMAB) CONC FOR SOLUTION FOR INFUSION [Suspect]
     Indication: LYMPHOMA
     Dosage: 625 MG, INTRAVENOUS
     Route: 042
     Dates: start: 20050421
  3. ALDESLEUKIN (ALDESLEUKIN) [Suspect]
     Indication: LYMPHOMA
     Dosage: 14 + 10MIU, 3/WEEK, SUBCUTANEOUS
     Route: 058
     Dates: start: 20050329, end: 20050414
  4. ALDESLEUKIN (ALDESLEUKIN) [Suspect]
     Indication: LYMPHOMA
     Dosage: 14 + 10MIU, 3/WEEK, SUBCUTANEOUS
     Route: 058
     Dates: start: 20050421
  5. CLARITINE (LORATADINE) [Concomitant]
  6. ACETAMINOPHEN [Concomitant]
  7. VITAMIN B12 [Concomitant]
  8. ALLOPURINOL [Concomitant]
  9. FOLIC AICD (FOLIC ACID) [Concomitant]
  10. ASCORBIC ACID [Concomitant]
  11. DIMEDROL (DIPHENHYDRAMINE NOS) [Concomitant]
  12. 0.9 SODIUM CHLORIDE (SODIUM CHLORIDE) [Concomitant]
  13. 5% GLUCOSE SOLUTION (GLUCOSE POLYMERS) [Concomitant]
  14. DIOTER (UNK INGREDIENTS) (GENERIC COMPONENT(S) [Concomitant]
  15. ESSENTIALE (UNK INGREDIENTS) (GENERIC COMPONENT(S) [Concomitant]
  16. THIATRIAZOLIN (UNK INGREDIENTS) (FENERIC COMPONENT(S) [Concomitant]
  17. ANALGIN (UNK INGREDIENTS) (GENERIC COMPONENT(S) [Concomitant]
  18. BIOFERMIN (LACTOBACILLUS ACIDOPHILUS) [Concomitant]
  19. DYPHYLLINE (DYPHYLLINE) [Concomitant]
  20. PENTOXIFYLLINE [Concomitant]
  21. GLOBIRON SYRUP (FERRIC AMMONIUM CITRATE, FOLIC ACID, HEMOGLOBIN) [Concomitant]
  22. MILDRONAT (UNK INGREDIENTS) (GENERIC COMPONENT(S) [Concomitant]

REACTIONS (6)
  - ASTHENIA [None]
  - CEREBROVASCULAR ACCIDENT [None]
  - ENCEPHALOPATHY [None]
  - HEMIPARESIS [None]
  - HYPOTONIA [None]
  - SINUSITIS [None]
